FAERS Safety Report 6532659-7 (Version None)
Quarter: 2009Q4

REPORT INFORMATION
  Report Type: 
  Country: None (occurrence: None)
  Receive Date: 20091231
  Receipt Date: 20091119
  Transmission Date: 20100525
  Serious: Yes (Death, Other)
  Sender: FDA-Public Use
  Company Number: AUR-APL-2009-01465

PATIENT
  Age: 18 Year
  Sex: Male

DRUGS (8)
  1. CYCLOBENZAPRINE [Suspect]
     Indication: SUICIDE ATTEMPT
     Dosage: ORAL
     Route: 048
  2. IBUPROFEN [Suspect]
     Indication: SUICIDE ATTEMPT
     Dosage: ORAL
     Route: 048
  3. NAPROXEN [Suspect]
     Indication: SUICIDE ATTEMPT
  4. ESCITALOPRAM [Suspect]
     Indication: SUICIDE ATTEMPT
  5. PSEUDOEPHEDRINE HCL [Suspect]
     Indication: SUICIDE ATTEMPT
  6. ASPIRIN [Suspect]
     Indication: SUICIDE ATTEMPT
  7. ACETAMINOPHEN AND CODEINE PHOSPHATE [Suspect]
     Indication: SUICIDE ATTEMPT
  8. GUAIFENESIN [Suspect]
     Indication: SUICIDE ATTEMPT

REACTIONS (23)
  - ALANINE AMINOTRANSFERASE DECREASED [None]
  - APNOEIC ATTACK [None]
  - ASPARTATE AMINOTRANSFERASE INCREASED [None]
  - BLOOD CREATINE PHOSPHOKINASE INCREASED [None]
  - BLOOD CREATININE INCREASED [None]
  - BLOOD PH DECREASED [None]
  - BLOOD POTASSIUM INCREASED [None]
  - HEPATIC FUNCTION ABNORMAL [None]
  - HYPOTENSION [None]
  - HYPOTONIA [None]
  - INTERNATIONAL NORMALISED RATIO DECREASED [None]
  - MULTIPLE DRUG OVERDOSE INTENTIONAL [None]
  - MYOGLOBIN BLOOD INCREASED [None]
  - PUPILLARY DISORDER [None]
  - RENAL IMPAIRMENT [None]
  - RESPIRATORY FAILURE [None]
  - SUBARACHNOID HAEMORRHAGE [None]
  - SUICIDE ATTEMPT [None]
  - TACHYCARDIA [None]
  - THERMOMETRY ABNORMAL [None]
  - TOXICOLOGIC TEST ABNORMAL [None]
  - UNRESPONSIVE TO STIMULI [None]
  - URINARY RETENTION [None]
